FAERS Safety Report 6836682-4 (Version None)
Quarter: 2010Q3

REPORT INFORMATION
  Report Type: 
  Country: None (occurrence: None)
  Receive Date: 20100713
  Receipt Date: 20100630
  Transmission Date: 20110219
  Serious: Yes (Hospitalization, Other)
  Sender: FDA-Public Use
  Company Number: PHHY2010FI21125

PATIENT
  Sex: Female

DRUGS (1)
  1. ELIDEL [Suspect]
     Indication: DERMATITIS ATOPIC
     Dosage: 100 G, IN TWO-THREE WEEKS
     Route: 061
     Dates: start: 20091001

REACTIONS (16)
  - ABSCESS DRAINAGE [None]
  - ABSCESS NECK [None]
  - AXILLARY MASS [None]
  - HISTOLOGY ABNORMAL [None]
  - HYPERSENSITIVITY [None]
  - IMMUNODEFICIENCY [None]
  - INHIBITORY DRUG INTERACTION [None]
  - LYMPH NODE PAIN [None]
  - LYMPHADENITIS [None]
  - LYMPHADENOPATHY [None]
  - NECROTISING GRANULOMATOUS LYMPHADENITIS [None]
  - PYREXIA [None]
  - RASH PUSTULAR [None]
  - STAPHYLOCOCCAL ABSCESS [None]
  - STAPHYLOCOCCAL INFECTION [None]
  - SUBCUTANEOUS ABSCESS [None]
